FAERS Safety Report 10142594 (Version 1)
Quarter: 2014Q2

REPORT INFORMATION
  Report Type: Spontaneous
  Country: US (occurrence: None)
  Receive Date: 20140428
  Receipt Date: 20140428
  Transmission Date: 20141212
  Serious: Yes (Life-Threatening)
  Sender: FDA-Public Use
  Company Number: None

PATIENT
  Age: 49 Year
  Sex: Male
  Weight: 95 kg

DRUGS (7)
  1. PHENTERMINE [Suspect]
     Dosage: 1 CAPSULE, QD, ORAL
     Route: 048
  2. CHOLECALCIFEROL [Concomitant]
  3. METFORMIN [Concomitant]
  4. MONTELUKAST [Concomitant]
  5. PRAVASTATIN [Concomitant]
  6. TOPIRAMATE [Concomitant]
  7. TIRAMTERENE/HYDROCHLOROTHIAZIDE [Concomitant]

REACTIONS (1)
  - Acute myocardial infarction [None]
